FAERS Safety Report 6295746-7 (Version None)
Quarter: 2009Q3

REPORT INFORMATION
  Report Type: 
  Country: None (occurrence: None)
  Receive Date: 20090804
  Receipt Date: 20090423
  Transmission Date: 20100115
  Serious: Yes (Disabling, Other)
  Sender: FDA-Public Use
  Company Number: BR-PFIZER INC-2009203236

PATIENT
  Age: 45 Year

DRUGS (11)
  1. MINIDIAB [Suspect]
     Indication: DIABETES MELLITUS
     Dosage: 5 MG, 1X/DAY
     Route: 048
     Dates: start: 20070101
  2. FOLIC ACID [Concomitant]
     Dosage: UNK
  3. VITAMIN B COMPLEX CAP [Concomitant]
     Dosage: UNK
  4. CALCIUM CARBONATE [Concomitant]
     Dosage: UNK
  5. RENAGEL [Concomitant]
     Dosage: UNK
  6. CARVEDILOL [Concomitant]
     Dosage: UNK
     Dates: start: 20070101
  7. SUSTRATE [Concomitant]
     Dosage: UNK
  8. AMLODIPINE [Concomitant]
     Dosage: UNK
  9. FERRIC HYDROXIDE POLYMALTOSE COMPLEX [Concomitant]
     Dosage: UNK
  10. EPOETIN ALFA [Concomitant]
     Dosage: UNK
  11. CALCITRIOL [Concomitant]
     Dosage: UNK

REACTIONS (5)
  - DRUG INEFFECTIVE [None]
  - FEMUR FRACTURE [None]
  - GAIT DISTURBANCE [None]
  - GASTRIC DISORDER [None]
  - NAUSEA [None]
